FAERS Safety Report 10066540 (Version 3)
Quarter: 2014Q2

REPORT INFORMATION
  Report Type: Spontaneous
  Country: US (occurrence: US)
  Receive Date: 20140408
  Receipt Date: 20140506
  Transmission Date: 20141212
  Serious: Yes (Other)
  Sender: FDA-Public Use
  Company Number: CHPA2014US004954

PATIENT
  Age: 78 Year
  Sex: Female

DRUGS (4)
  1. EXCEDRIN TENSION HEADACHE [Suspect]
     Indication: TENSION HEADACHE
     Dosage: UNK, UNK
     Route: 048
  2. EXCEDRIN TENSION HEADACHE [Suspect]
     Indication: MUSCLE TIGHTNESS
  3. EXCEDRIN TENSION HEADACHE [Suspect]
     Indication: OFF LABEL USE
  4. EXCEDRIN UNKNOWN [Suspect]
     Indication: PAIN
     Dosage: UNK, UNK
     Route: 065

REACTIONS (8)
  - Osteoporosis [Recovering/Resolving]
  - Migraine [Not Recovered/Not Resolved]
  - Ulcer [Recovered/Resolved]
  - Dyspepsia [Recovered/Resolved]
  - Abdominal discomfort [Recovered/Resolved]
  - Back disorder [Recovering/Resolving]
  - Asthenia [Not Recovered/Not Resolved]
  - Pain [Recovering/Resolving]
